FAERS Safety Report 8484024-3 (Version None)
Quarter: 2012Q2

REPORT INFORMATION
  Report Type: 
  Country: None (occurrence: None)
  Receive Date: 20120627
  Receipt Date: 20120627
  Transmission Date: 20120825
  Serious: Yes (Hospitalization)
  Sender: FDA-Public Use
  Company Number: None

PATIENT
  Age: 64 Year
  Sex: Male
  Weight: 90.3 kg

DRUGS (1)
  1. HEPARIN [Suspect]
     Indication: DEEP VEIN THROMBOSIS
     Dates: start: 20120522, end: 20120527

REACTIONS (2)
  - HAEMORRHAGE [None]
  - HAEMATOMA [None]
